FAERS Safety Report 18569960 (Version 1)
Quarter: 2020Q4

REPORT INFORMATION
  Report Type: Spontaneous
  Country: US (occurrence: US)
  Receive Date: 20201202
  Receipt Date: 20201202
  Transmission Date: 20210114
  Serious: No
  Sender: FDA-Public Use
  Company Number: US-DECIPHERA PHARMACEUTICALS LLC-2020-US-000593

PATIENT
  Sex: Female

DRUGS (2)
  1. QINLOCK [Suspect]
     Active Substance: RIPRETINIB
     Dosage: 100 MILLIGRAM, QD
     Route: 048
     Dates: start: 20201022
  2. QINLOCK [Suspect]
     Active Substance: RIPRETINIB
     Indication: GASTRIC CANCER
     Dosage: 150 MILLIGRAM, QD
     Route: 048
     Dates: start: 20200929, end: 20201014

REACTIONS (5)
  - Tongue discolouration [Unknown]
  - Glossodynia [Unknown]
  - Illness [Unknown]
  - Ageusia [Unknown]
  - Abdominal discomfort [Unknown]
